FAERS Safety Report 23441291 (Version 1)
Quarter: 2024Q1

REPORT INFORMATION
  Report Type: Spontaneous
  Country: US (occurrence: None)
  Receive Date: 20240125
  Receipt Date: 20240125
  Transmission Date: 20240410
  Serious: No
  Sender: FDA-Public Use
  Company Number: 2024A017211

PATIENT

DRUGS (1)
  1. SYMBICORT [Suspect]
     Active Substance: BUDESONIDE\FORMOTEROL FUMARATE DIHYDRATE
     Dosage: TWO TIMES A DAY
     Route: 055

REACTIONS (7)
  - Dyspnoea [Unknown]
  - Cough [Not Recovered/Not Resolved]
  - Illness [Unknown]
  - Drug dose omission by device [Not Recovered/Not Resolved]
  - Device use issue [Unknown]
  - Wrong technique in device usage process [Unknown]
  - Device malfunction [Unknown]
